FAERS Safety Report 18801521 (Version 1)
Quarter: 2021Q1

REPORT INFORMATION
  Report Type: Report from Study
  Country: DE (occurrence: DE)
  Receive Date: 20210128
  Receipt Date: 20210128
  Transmission Date: 20210419
  Serious: Yes (Other)
  Sender: FDA-Public Use
  Company Number: DE-IBIGEN-2021.09849

PATIENT
  Age: 54 Year
  Sex: Female

DRUGS (4)
  1. PIPERACILLIN/TAZOBACTAM [Suspect]
     Active Substance: PIPERACILLIN SODIUM\TAZOBACTAM SODIUM
     Indication: PRODUCT USED FOR UNKNOWN INDICATION
     Dosage: ()
     Route: 065
  2. RINVOQ [Suspect]
     Active Substance: UPADACITINIB
     Indication: RHEUMATOID ARTHRITIS
     Route: 048
     Dates: start: 20200612, end: 20200708
  3. CORTISON [Concomitant]
     Active Substance: CORTISONE ACETATE
     Indication: RHEUMATIC DISORDER
     Dosage: ()
  4. HUMIRA [Suspect]
     Active Substance: ADALIMUMAB
     Indication: PRODUCT USED FOR UNKNOWN INDICATION
     Dosage: ()
     Route: 058
     Dates: end: 2018

REACTIONS (34)
  - Lymphocyte count decreased [Unknown]
  - Acute myocardial infarction [Unknown]
  - Septic shock [Unknown]
  - Red blood cell count decreased [Unknown]
  - Blood potassium decreased [Recovered/Resolved]
  - Immature granulocyte count increased [Unknown]
  - Neutrophil count increased [Unknown]
  - Myiasis [Unknown]
  - Pericardial effusion [Unknown]
  - N-terminal prohormone brain natriuretic peptide increased [Unknown]
  - Haemoglobin decreased [Not Recovered/Not Resolved]
  - Monocyte count increased [Unknown]
  - Pyrexia [Unknown]
  - Procalcitonin increased [Unknown]
  - Haematocrit decreased [Unknown]
  - Chills [Unknown]
  - Red cell distribution width increased [Unknown]
  - Blood lactate dehydrogenase increased [Unknown]
  - Eosinophil count decreased [Unknown]
  - C-reactive protein increased [Not Recovered/Not Resolved]
  - Myocarditis [Unknown]
  - Drug hypersensitivity [Unknown]
  - White blood cell count increased [Recovered/Resolved]
  - Coronary artery disease [Unknown]
  - Gamma-glutamyltransferase increased [Unknown]
  - Adverse event [Unknown]
  - Myocardial fibrosis [Unknown]
  - Red cell distribution width increased [Not Recovered/Not Resolved]
  - Ventricular fibrillation [Unknown]
  - Arteriosclerosis coronary artery [Unknown]
  - Ventricular tachycardia [Unknown]
  - Left ventricular dysfunction [Unknown]
  - Myocarditis [Unknown]
  - Inflammation [Unknown]

NARRATIVE: CASE EVENT DATE: 2020
